FAERS Safety Report 18766316 (Version 1)
Quarter: 2021Q1

REPORT INFORMATION
  Report Type: Spontaneous
  Country: US (occurrence: US)
  Receive Date: 20210120
  Receipt Date: 20210120
  Transmission Date: 20210419
  Serious: Yes (Hospitalization)
  Sender: FDA-Public Use
  Company Number: US-SENTYNL THERAPEUTICS, INC.  -2105631

PATIENT
  Age: 41 Year
  Sex: Female

DRUGS (1)
  1. LEVORPHANOL TARTRATE. [Suspect]
     Active Substance: LEVORPHANOL TARTRATE
     Indication: EHLERS-DANLOS SYNDROME
     Route: 048

REACTIONS (1)
  - Product dose omission issue [Unknown]
